FAERS Safety Report 9392238 (Version 1)
Quarter: 2013Q3

REPORT INFORMATION
  Report Type: Report from Study
  Country: US (occurrence: US)
  Receive Date: 20130710
  Receipt Date: 20130710
  Transmission Date: 20140515
  Serious: Yes (Other)
  Sender: FDA-Public Use
  Company Number: US-ROCHE-1244535

PATIENT
  Age: 61 Year
  Sex: Male

DRUGS (3)
  1. VISMODEGIB [Suspect]
     Indication: BASAL CELL CARCINOMA
     Route: 065
  2. DOXORUBICIN [Concomitant]
  3. CISPLATIN [Concomitant]

REACTIONS (1)
  - Squamous cell carcinoma [Unknown]
